FAERS Safety Report 8273041-4 (Version None)
Quarter: 2012Q2

REPORT INFORMATION
  Report Type: 
  Country: None (occurrence: None)
  Receive Date: 20120411
  Receipt Date: 20120405
  Transmission Date: 20120825
  Serious: No
  Sender: FDA-Public Use
  Company Number: US-PFIZER INC-2012087152

PATIENT
  Sex: Female

DRUGS (3)
  1. DETROL [Suspect]
     Dosage: UNK
  2. VESICARE [Suspect]
     Dosage: UNK
  3. OXYBUTYNIN [Suspect]
     Dosage: UNK

REACTIONS (8)
  - FLATULENCE [None]
  - CONSTIPATION [None]
  - DRY MOUTH [None]
  - FEELING ABNORMAL [None]
  - ABDOMINAL DISTENSION [None]
  - CONFUSIONAL STATE [None]
  - DRUG INEFFECTIVE [None]
  - ABDOMINAL PAIN UPPER [None]
